FAERS Safety Report 6364069-X (Version None)
Quarter: 2009Q3

REPORT INFORMATION
  Report Type: 
  Country: None (occurrence: None)
  Receive Date: 20090919
  Receipt Date: 20090713
  Transmission Date: 20100115
  Serious: No
  Sender: FDA-Public Use
  Company Number: US-ABBOTT-09P-163-0585391-00

PATIENT
  Sex: Female

DRUGS (5)
  1. HUMIRA [Suspect]
     Indication: CROHN'S DISEASE
     Dosage: RECEIVED 80 MG; TWO PENS MALFUNCTIONED
     Route: 058
     Dates: start: 20090610, end: 20090610
  2. HUMIRA [Suspect]
     Dosage: ONLY RECEIVED 80MG, TWO OTHER PENS MALFUNCTIONED.
     Route: 058
     Dates: start: 20090624, end: 20090624
  3. HUMIRA [Suspect]
     Dosage: MISSED THIS DOSE
     Dates: start: 20090708
  4. SYNTHROID [Concomitant]
     Indication: BASEDOW'S DISEASE
  5. CYTOMEL [Concomitant]
     Indication: BASEDOW'S DISEASE

REACTIONS (2)
  - DRUG DOSE OMISSION [None]
  - INCORRECT DOSE ADMINISTERED [None]
